FAERS Safety Report 15916862 (Version 1)
Quarter: 2019Q1

REPORT INFORMATION
  Report Type: Spontaneous
  Country: CA (occurrence: CA)
  Receive Date: 20190205
  Receipt Date: 20190205
  Transmission Date: 20190417
  Serious: Yes (Other)
  Sender: FDA-Public Use
  Company Number: CA-AMGEN-CANSP2019014607

PATIENT
  Age: 86 Year
  Sex: Female

DRUGS (3)
  1. VITAMIN D [Concomitant]
     Active Substance: CHOLECALCIFEROL
  2. PROLIA [Suspect]
     Active Substance: DENOSUMAB
     Indication: OSTEOPOROSIS POSTMENOPAUSAL
     Dosage: UNK
     Route: 065
     Dates: start: 2016
  3. CALCIUM [Concomitant]
     Active Substance: CALCIUM

REACTIONS (9)
  - Dry skin [Recovering/Resolving]
  - Skin haemorrhage [Recovering/Resolving]
  - Cough [Unknown]
  - Rash pruritic [Recovering/Resolving]
  - Constipation [Unknown]
  - Skin exfoliation [Recovering/Resolving]
  - Intestinal polypectomy [Unknown]
  - Scar [Recovering/Resolving]
  - Diarrhoea [Recovered/Resolved]
